FAERS Safety Report 20489336 (Version 2)
Quarter: 2022Q4

REPORT INFORMATION
  Report Type: Spontaneous
  Country: US (occurrence: US)
  Receive Date: 20220218
  Receipt Date: 20221020
  Transmission Date: 20230112
  Serious: Yes (Death, Other)
  Sender: FDA-Public Use
  Company Number: US-BRISTOL-MYERS SQUIBB COMPANY-BMS-2022-023832

PATIENT
  Age: 58 Year
  Sex: Female
  Weight: 64.863 kg

DRUGS (1)
  1. OPDIVO [Suspect]
     Active Substance: NIVOLUMAB
     Indication: Gastrointestinal stromal tumour
     Dosage: 240 MILLIGRAM, Q2WK
     Route: 042

REACTIONS (1)
  - Death [Fatal]
